FAERS Safety Report 23144285 (Version 4)
Quarter: 2023Q4

REPORT INFORMATION
  Report Type: Spontaneous
  Country: BR (occurrence: BR)
  Receive Date: 20231103
  Receipt Date: 20231213
  Transmission Date: 20240110
  Serious: Yes (Death, Hospitalization, Other)
  Sender: FDA-Public Use
  Company Number: BR-ANVISA-300217050

PATIENT
  Age: 74 Year
  Sex: Female

DRUGS (2)
  1. PEMBROLIZUMAB [Suspect]
     Active Substance: PEMBROLIZUMAB
     Indication: Squamous cell carcinoma of skin
     Dosage: UNK
     Dates: start: 202308, end: 202308
  2. PEMBROLIZUMAB [Suspect]
     Active Substance: PEMBROLIZUMAB
     Dosage: 30 MILLIGRAM, EVERY 21 DAYS
     Route: 042
     Dates: start: 2023

REACTIONS (6)
  - Myiasis [Fatal]
  - Sepsis [Unknown]
  - Depressed level of consciousness [Unknown]
  - Ulcer [Unknown]
  - Incorrect dose administered [Unknown]
  - Inability to afford medication [Unknown]

NARRATIVE: CASE EVENT DATE: 20230101
